FAERS Safety Report 8570145-3 (Version None)
Quarter: 2012Q3

REPORT INFORMATION
  Report Type: 
  Country: None (occurrence: None)
  Receive Date: 20120803
  Receipt Date: 20120724
  Transmission Date: 20120928
  Serious: Yes (Other)
  Sender: FDA-Public Use
  Company Number: US-ABBOTT-12P-163-0960753-00

PATIENT
  Sex: Female
  Weight: 50.848 kg

DRUGS (4)
  1. CERVIDIL [Suspect]
     Indication: INDUCED LABOUR
     Dates: start: 20111014, end: 20111014
  2. LOVENOX [Concomitant]
     Indication: THROMBOSIS PROPHYLAXIS
  3. MULTI-VITAMINS [Concomitant]
     Indication: PREGNANCY
  4. HUMIRA [Suspect]
     Indication: COLITIS ULCERATIVE
     Route: 058
     Dates: start: 20070101, end: 20110201

REACTIONS (5)
  - HYPERTENSION [None]
  - PREMATURE SEPARATION OF PLACENTA [None]
  - GESTATIONAL DIABETES [None]
  - POSTPARTUM DEPRESSION [None]
  - OFF LABEL USE [None]
